FAERS Safety Report 16170301 (Version 1)
Quarter: 2019Q2

REPORT INFORMATION
  Report Type: Spontaneous
  Country: US (occurrence: US)
  Receive Date: 20190408
  Receipt Date: 20190408
  Transmission Date: 20190711
  Serious: No
  Sender: FDA-Public Use
  Company Number: US-TEVA-2019-US-1034726

PATIENT
  Sex: Female

DRUGS (1)
  1. DILTIAZEM. [Suspect]
     Active Substance: DILTIAZEM

REACTIONS (4)
  - Product substitution issue [Unknown]
  - Feeling jittery [Unknown]
  - Anxiety [Unknown]
  - Dizziness [Unknown]

NARRATIVE: CASE EVENT DATE: 20190305
